FAERS Safety Report 7823666-2 (Version None)
Quarter: 2011Q4

REPORT INFORMATION
  Report Type: 
  Country: None (occurrence: None)
  Receive Date: 20111019
  Receipt Date: 20111019
  Transmission Date: 20120403
  Serious: No
  Sender: FDA-Public Use
  Company Number: None

PATIENT
  Age: 16 Year
  Sex: Female
  Weight: 63.502 kg

DRUGS (1)
  1. SINGULAIR [Suspect]
     Indication: ASTHMA
     Dosage: 10 MG
     Route: 048
     Dates: start: 20090315, end: 20100215

REACTIONS (3)
  - FEELING JITTERY [None]
  - SUICIDAL IDEATION [None]
  - ANXIETY [None]
